FAERS Safety Report 8264912-3 (Version None)
Quarter: 2012Q2

REPORT INFORMATION
  Report Type: 
  Country: None (occurrence: None)
  Receive Date: 20120404
  Receipt Date: 20111208
  Transmission Date: 20120825
  Serious: Yes (Other)
  Sender: FDA-Public Use
  Company Number: 2011SP053948

PATIENT
  Age: 63 Year
  Sex: Female
  Weight: 58.9676 kg

DRUGS (5)
  1. MIRALAX [Suspect]
     Indication: CONSTIPATION
     Dosage: 17 GM;ONCE PO
     Route: 048
     Dates: start: 20111025
  2. MIRALAX [Suspect]
     Indication: CONSTIPATION
     Dosage: 17 GM;ONCE PO
     Route: 048
     Dates: start: 20111111, end: 20111112
  3. GABITRIL [Concomitant]
  4. DILANTIN [Concomitant]
  5. CARBATROL [Concomitant]

REACTIONS (3)
  - THERAPEUTIC PRODUCT INEFFECTIVE [None]
  - DEHYDRATION [None]
  - HYPERSOMNIA [None]
